FAERS Safety Report 23108382 (Version 1)
Quarter: 2023Q4

REPORT INFORMATION
  Report Type: Spontaneous
  Country: US (occurrence: None)
  Receive Date: 20231024
  Receipt Date: 20231024
  Transmission Date: 20240110
  Serious: Yes (Hospitalization)
  Sender: FDA-Public Use
  Company Number: None

PATIENT
  Age: 79 Year
  Sex: Male

DRUGS (1)
  1. APIXABAN [Suspect]
     Active Substance: APIXABAN
     Dates: start: 20220506, end: 20230315

REACTIONS (8)
  - Lower gastrointestinal haemorrhage [None]
  - Haematochezia [None]
  - Rectal prolapse [None]
  - Anal fissure [None]
  - Large intestine polyp [None]
  - Gastrointestinal tract mucosal pigmentation [None]
  - Diverticulum [None]
  - Haemorrhoids [None]

NARRATIVE: CASE EVENT DATE: 20230317
